FAERS Safety Report 10659744 (Version 3)
Quarter: 2016Q3

REPORT INFORMATION
  Report Type: Spontaneous
  Country: IE (occurrence: IE)
  Receive Date: 20141217
  Receipt Date: 20160930
  Transmission Date: 20161109
  Serious: Yes (Other)
  Sender: FDA-Public Use
  Company Number: IE-PFIZER INC-2014344727

PATIENT
  Age: 65 Year
  Sex: Male

DRUGS (5)
  1. MICARDIS [Concomitant]
     Active Substance: TELMISARTAN
  2. INLYTA [Suspect]
     Active Substance: AXITINIB
     Dosage: 6 MG, TWICE A DAY
     Route: 048
     Dates: end: 20151018
  3. INLYTA [Suspect]
     Active Substance: AXITINIB
     Dosage: 5 MG, 2X/DAY
     Route: 048
     Dates: start: 20141114
  4. NEXIUM [Concomitant]
     Active Substance: ESOMEPRAZOLE MAGNESIUM
  5. INLYTA [Suspect]
     Active Substance: AXITINIB
     Indication: METASTATIC RENAL CELL CARCINOMA
     Dosage: 12 MG, DAILY(5MG IN THE MORNING AND 7MG IN THE EVENING )
     Route: 048
     Dates: start: 2014, end: 201411

REACTIONS (5)
  - Pulmonary embolism [Unknown]
  - Hypertension [Unknown]
  - Lower respiratory tract infection [Unknown]
  - Neoplasm progression [Unknown]
  - Dysphonia [Unknown]
